FAERS Safety Report 7311440-5 (Version None)
Quarter: 2011Q1

REPORT INFORMATION
  Report Type: 
  Country: None (occurrence: None)
  Receive Date: 20110216
  Receipt Date: 20110216
  Transmission Date: 20110831
  Serious: Yes (Life-Threatening)
  Sender: FDA-Public Use
  Company Number: None

PATIENT
  Sex: Female
  Weight: 69.5 kg

DRUGS (10)
  1. VIVELLE [Concomitant]
  2. FROVA [Concomitant]
  3. ALENDRONATE [Concomitant]
  4. SODIUM [Concomitant]
  5. LEVOTHYROXINE SODIUM [Concomitant]
  6. ORPHENADRINE CITRATE [Concomitant]
  7. HYDROCODONE BITARTRATE + ACETAMINOPHEN [Suspect]
     Indication: BACK PAIN
     Dosage: 10/325 MG UP TO 4/ DAY ORAL 047
     Route: 048
     Dates: start: 20110110, end: 20110209
  8. CELEBREX [Concomitant]
  9. ZOLPIDEM [Concomitant]
  10. SUMATRIPTAN SUCCINATE [Concomitant]

REACTIONS (10)
  - DEPRESSION [None]
  - ANXIETY [None]
  - NERVOUSNESS [None]
  - FEELING JITTERY [None]
  - TREMOR [None]
  - PRODUCT QUALITY ISSUE [None]
  - INSOMNIA [None]
  - PAIN [None]
  - DYSPNOEA [None]
  - DECREASED APPETITE [None]
